FAERS Safety Report 9259059 (Version 4)
Quarter: 2013Q3

REPORT INFORMATION
  Report Type: Report from Study
  Country: FR (occurrence: FR)
  Receive Date: 20130426
  Receipt Date: 20130925
  Transmission Date: 20140515
  Serious: Yes (Death, Hospitalization, Other)
  Sender: FDA-Public Use
  Company Number: FR-TEVA-400231ISR

PATIENT
  Age: 61 Year
  Sex: Male
  Weight: 77 kg

DRUGS (2)
  1. EFFENTORA [Suspect]
     Indication: BREAKTHROUGH PAIN
     Route: 002
     Dates: start: 201303
  2. METHADONE [Concomitant]
     Route: 065

REACTIONS (14)
  - Malignant neoplasm progression [Fatal]
  - General physical health deterioration [Fatal]
  - Dyspnoea [Fatal]
  - Somnolence [Recovered/Resolved]
  - Urinary retention [Unknown]
  - General physical health deterioration [Unknown]
  - Amnesia [Unknown]
  - Pain in extremity [Unknown]
  - Local swelling [Unknown]
  - Anaemia [Unknown]
  - Inflammation [Unknown]
  - Speech disorder [Unknown]
  - Disorientation [Unknown]
  - Medication error [Unknown]
